FAERS Safety Report 24015231 (Version 3)
Quarter: 2024Q3

REPORT INFORMATION
  Report Type: Spontaneous
  Country: US (occurrence: US)
  Receive Date: 20240626
  Receipt Date: 20240724
  Transmission Date: 20241016
  Serious: Yes (Other)
  Sender: PFIZER
  Company Number: US-PFIZER INC-PV202400082574

PATIENT
  Age: 79 Year
  Sex: Male

DRUGS (2)
  1. INLYTA [Suspect]
     Active Substance: AXITINIB
     Indication: Renal cancer
     Dosage: 5 MG
     Dates: start: 20240617, end: 20240625
  2. INLYTA [Suspect]
     Active Substance: AXITINIB
     Indication: Lung neoplasm malignant

REACTIONS (16)
  - Red blood cell count decreased [Unknown]
  - Feeling cold [Unknown]
  - Fatigue [Unknown]
  - Asthenia [Unknown]
  - Hypersomnia [Unknown]
  - Decreased appetite [Unknown]
  - Weight decreased [Unknown]
  - Eating disorder [Unknown]
  - Blood pressure systolic increased [Unknown]
  - Malaise [Unknown]
  - Hypertension [Unknown]
  - Pain in extremity [Unknown]
  - Back pain [Unknown]
  - Heart rate decreased [Unknown]
  - Fluid retention [Unknown]
  - Cardiac disorder [Unknown]

NARRATIVE: CASE EVENT DATE: 20240601
